FAERS Safety Report 7249092-5 (Version None)
Quarter: 2011Q1

REPORT INFORMATION
  Report Type: 
  Country: None (occurrence: None)
  Receive Date: 20110128
  Receipt Date: 20101014
  Transmission Date: 20110831
  Serious: Yes (Hospitalization, Other)
  Sender: FDA-Public Use
  Company Number: US-BAYER-201033843NA

PATIENT
  Sex: Female
  Weight: 115 kg

DRUGS (11)
  1. ORTHO EVRA [Concomitant]
     Indication: PRODUCT USED FOR UNKNOWN INDICATION
  2. ORAL CONTRACEPTIVE NOS [Concomitant]
     Indication: CONTRACEPTION
  3. OXYGEN [Concomitant]
     Indication: PRODUCT USED FOR UNKNOWN INDICATION
     Dosage: UNK
     Dates: start: 20090801
  4. YAZ [Suspect]
     Dosage: UNK
     Route: 048
     Dates: start: 20080801
  5. ZOFRAN [Concomitant]
     Indication: PRODUCT USED FOR UNKNOWN INDICATION
     Dosage: UNK
     Dates: start: 20090801
  6. PROPRANOLOL [Concomitant]
     Indication: PRODUCT USED FOR UNKNOWN INDICATION
  7. YASMIN [Suspect]
     Indication: PREMENSTRUAL SYNDROME
     Dosage: UNK
     Route: 048
     Dates: start: 20080801
  8. ACETAMINOPHEN AND HYDROCODONE BITARTRATE [Concomitant]
     Indication: PRODUCT USED FOR UNKNOWN INDICATION
     Dosage: UNK
     Dates: start: 20090801
  9. HYDROCHLOROTHIAZIDE [Concomitant]
     Indication: PRODUCT USED FOR UNKNOWN INDICATION
     Dosage: UNK
  10. MOTRIN [Concomitant]
     Indication: PRODUCT USED FOR UNKNOWN INDICATION
  11. MORPHINE [Concomitant]
     Indication: PRODUCT USED FOR UNKNOWN INDICATION
     Dosage: UNK
     Dates: start: 20090801

REACTIONS (12)
  - RESPIRATORY FAILURE [None]
  - CHEST PAIN [None]
  - DYSPNOEA [None]
  - PULMONARY HYPERTENSION [None]
  - DEEP VEIN THROMBOSIS [None]
  - HYPOXIA [None]
  - PULMONARY EMBOLISM [None]
  - PANIC ATTACK [None]
  - PAIN IN EXTREMITY [None]
  - PAIN [None]
  - RIGHT VENTRICULAR FAILURE [None]
  - PARAESTHESIA [None]
